FAERS Safety Report 4552951-5 (Version None)
Quarter: 2005Q1

REPORT INFORMATION
  Report Type: 
  Country: None (occurrence: None)
  Receive Date: 20050113
  Receipt Date: 20050106
  Transmission Date: 20050727
  Serious: Yes (Hospitalization)
  Sender: FDA-Public Use
  Company Number: 25957

PATIENT
  Age: 17 Year
  Sex: Female

DRUGS (1)
  1. ALDARA [Suspect]
     Indication: CONDYLOMA ACUMINATUM
     Dosage: (1 SACHET, 2 TOTAL ), TOPICAL
     Route: 061
     Dates: start: 20041210, end: 20041212

REACTIONS (10)
  - APPLICATION SITE ERYTHEMA [None]
  - APPLICATION SITE EXCORIATION [None]
  - APPLICATION SITE NECROSIS [None]
  - APPLICATION SITE OEDEMA [None]
  - APPLICATION SITE PAIN [None]
  - DYSURIA [None]
  - PAIN [None]
  - PYREXIA [None]
  - SKIN NECROSIS [None]
  - SWELLING [None]
